FAERS Safety Report 5415540-6 (Version None)
Quarter: 2007Q3

REPORT INFORMATION
  Report Type: 
  Country: None (occurrence: None)
  Receive Date: 20070815
  Receipt Date: 20070809
  Transmission Date: 20080115
  Serious: Yes (Hospitalization)
  Sender: FDA-Public Use
  Company Number: A0669882A

PATIENT
  Sex: Male

DRUGS (2)
  1. ADVAIR DISKUS 100/50 [Suspect]
     Indication: ASTHMA
     Route: 055
     Dates: start: 20060601
  2. SPIRIVA [Concomitant]
     Dates: start: 20060601

REACTIONS (4)
  - COUGH [None]
  - HAEMOPTYSIS [None]
  - PNEUMONIA [None]
  - RESPIRATORY TRACT IRRITATION [None]
